FAERS Safety Report 8953939 (Version 3)
Quarter: 2013Q1

REPORT INFORMATION
  Report Type: Spontaneous
  Country: US (occurrence: US)
  Receive Date: 20121206
  Receipt Date: 20130121
  Transmission Date: 20140127
  Serious: Yes (Hospitalization, Disabling)
  Sender: FDA-Public Use
  Company Number: US-009507513-1212USA001264

PATIENT
  Age: 47 None
  Sex: Male
  Weight: 78.46 kg

DRUGS (2)
  1. PROPECIA [Suspect]
     Indication: ALOPECIA
     Dosage: UNK
     Route: 048
     Dates: start: 201203
  2. CIPROFLOXACIN [Suspect]
     Indication: DIARRHOEA
     Dosage: UNK
     Dates: start: 201205

REACTIONS (29)
  - Suicidal ideation [Unknown]
  - Depression [Unknown]
  - Pain [Not Recovered/Not Resolved]
  - Muscle twitching [Not Recovered/Not Resolved]
  - Burning sensation [Not Recovered/Not Resolved]
  - Breast enlargement [Unknown]
  - Blood testosterone decreased [Unknown]
  - Fatigue [Not Recovered/Not Resolved]
  - Libido decreased [Recovered/Resolved]
  - Muscular weakness [Unknown]
  - Pain [Not Recovered/Not Resolved]
  - Tremor [Not Recovered/Not Resolved]
  - Panic attack [Not Recovered/Not Resolved]
  - Anxiety [Not Recovered/Not Resolved]
  - Nausea [Unknown]
  - Decreased appetite [Unknown]
  - Hyperhidrosis [Unknown]
  - Insomnia [Unknown]
  - Dyspnoea [Unknown]
  - Thirst [Unknown]
  - Dizziness [Unknown]
  - Erectile dysfunction [Unknown]
  - Pharyngitis [Not Recovered/Not Resolved]
  - Chest pain [Unknown]
  - Myalgia [Unknown]
  - Adverse drug reaction [Unknown]
  - Hypoaesthesia [Not Recovered/Not Resolved]
  - Paraesthesia [Not Recovered/Not Resolved]
  - Asthenia [Not Recovered/Not Resolved]
